FAERS Safety Report 5040664-5 (Version None)
Quarter: 2006Q2

REPORT INFORMATION
  Report Type: 
  Country: None (occurrence: None)
  Receive Date: 20060629
  Receipt Date: 20060629
  Transmission Date: 20061013
  Serious: Yes (Other)
  Sender: FDA-Public Use
  Company Number: None

PATIENT
  Age: 84 Year
  Sex: Female

DRUGS (7)
  1. VANCOMYCIN [Suspect]
     Indication: ENDOSCOPY GASTROINTESTINAL
     Dosage: 1 X DOSE A OP PROCEDURE IV
     Route: 042
     Dates: start: 20060503
  2. VANCOMYCIN [Suspect]
     Indication: PREOPERATIVE CARE
     Dosage: 1 X DOSE A OP PROCEDURE IV
     Route: 042
     Dates: start: 20060503
  3. NEXIUM [Concomitant]
  4. ZESTRIL [Concomitant]
  5. BONIVA [Concomitant]
  6. GEMFIBROZIL [Concomitant]
  7. BENADRYL [Concomitant]

REACTIONS (4)
  - BURNING SENSATION [None]
  - DEPRESSED LEVEL OF CONSCIOUSNESS [None]
  - HYPERHIDROSIS [None]
  - HYPOTENSION [None]
